FAERS Safety Report 5915316-7 (Version None)
Quarter: 2008Q4

REPORT INFORMATION
  Report Type: 
  Country: None (occurrence: None)
  Receive Date: 20081010
  Receipt Date: 20080930
  Transmission Date: 20090506
  Serious: Yes (Other)
  Sender: FDA-Public Use
  Company Number: US-JNJFOC-20081000240

PATIENT
  Sex: Female

DRUGS (4)
  1. REMICADE [Suspect]
     Indication: DRUG USE FOR UNKNOWN INDICATION
     Dosage: TREATMENT DURATION: 3 YEARS
     Route: 042
  2. ORENCIA [Concomitant]
     Dosage: TOOK MEDICATION 3 TIMES
  3. ENBREL [Concomitant]
  4. METHOTREXATE [Concomitant]

REACTIONS (1)
  - NEOPLASM MALIGNANT [None]
